FAERS Safety Report 8831347 (Version 5)
Quarter: 2013Q3

REPORT INFORMATION
  Report Type: Spontaneous
  Country: US (occurrence: US)
  Receive Date: 20121008
  Receipt Date: 20130909
  Transmission Date: 20140515
  Serious: Yes (Hospitalization, Other)
  Sender: FDA-Public Use
  Company Number: US-009507513-1210USA000855

PATIENT
  Sex: Female
  Weight: 63.49 kg

DRUGS (3)
  1. FOSAMAX [Suspect]
     Indication: OSTEOPOROSIS
     Dosage: 70 MG, QW
     Route: 048
     Dates: start: 2000, end: 2008
  2. FOSAMAX [Suspect]
     Indication: OSTEOPENIA
  3. ALENDRONATE SODIUM [Suspect]
     Indication: OSTEOPOROSIS
     Dosage: 70 MG, QW
     Route: 048
     Dates: start: 2008, end: 2010

REACTIONS (23)
  - Femur fracture [Unknown]
  - Intramedullary rod insertion [Unknown]
  - Urinary retention [Unknown]
  - Thrombocytopenia [Unknown]
  - Anaemia [Unknown]
  - Confusional state [Unknown]
  - Fall [Unknown]
  - Cerebrovascular accident [Unknown]
  - Low turnover osteopathy [Unknown]
  - Chronic obstructive pulmonary disease [Unknown]
  - Ankle operation [Unknown]
  - Arthritis [Unknown]
  - Ankle fracture [Unknown]
  - Tendinous contracture [Unknown]
  - Fall [Unknown]
  - Joint injury [Unknown]
  - Joint injury [Unknown]
  - Oral surgery [Unknown]
  - Endodontic procedure [Unknown]
  - Blood cholesterol increased [Unknown]
  - Depression [Unknown]
  - Gastrointestinal haemorrhage [Unknown]
  - Limb discomfort [Unknown]
